FAERS Safety Report 7029346-8 (Version None)
Quarter: 2010Q4

REPORT INFORMATION
  Report Type: 
  Country: None (occurrence: None)
  Receive Date: 20101005
  Receipt Date: 20100924
  Transmission Date: 20110411
  Serious: Yes (Other)
  Sender: FDA-Public Use
  Company Number: PHHY2010BR63964

PATIENT
  Sex: Female
  Weight: 72 kg

DRUGS (4)
  1. DIOVAN [Suspect]
     Indication: HYPERTENSION
     Dosage: 160 MG (1 TABLET BID)
     Route: 048
  2. DIGOXIN [Concomitant]
  3. ACETYLSALICYLIC ACID SRT [Concomitant]
     Dosage: 1 DF, QD
     Route: 048
  4. FUROSEMIDE [Concomitant]
     Indication: HYPERTENSION
     Dosage: 1 DF (IN THE MORNING)
     Route: 048

REACTIONS (5)
  - ASTHENIA [None]
  - BLOOD PRESSURE INCREASED [None]
  - DECREASED APPETITE [None]
  - DEPRESSION [None]
  - INSOMNIA [None]
